FAERS Safety Report 4604980-0 (Version None)
Quarter: 2005Q2

REPORT INFORMATION
  Report Type: 
  Country: None (occurrence: None)
  Receive Date: 20050217
  Receipt Date: 20041019
  Transmission Date: 20051028
  Serious: No
  Sender: FDA-Public Use
  Company Number: S04-USA-06982-01

PATIENT
  Age: 85 Year
  Sex: Female

DRUGS (8)
  1. NAMENDA [Suspect]
     Indication: DEMENTIA ALZHEIMER'S TYPE
     Dosage: 10 MG QD PO
     Route: 048
     Dates: start: 20040901, end: 20040901
  2. NAMENDA [Suspect]
     Indication: DEMENTIA ALZHEIMER'S TYPE
     Dosage: 5 MG QD PO
     Route: 048
     Dates: start: 20040901, end: 20040901
  3. ZOCOR [Concomitant]
  4. HYZAAR [Concomitant]
  5. DILTIAZEM [Concomitant]
  6. ASPIRIN [Concomitant]
  7. CALCIUM GLUCONATE [Concomitant]
  8. MAGNESIUM [Concomitant]

REACTIONS (1)
  - PARAESTHESIA [None]
